FAERS Safety Report 4307234-5 (Version None)
Quarter: 2004Q1

REPORT INFORMATION
  Report Type: 
  Country: None (occurrence: None)
  Receive Date: 20040226
  Receipt Date: 20040218
  Transmission Date: 20041129
  Serious: Yes (Death)
  Sender: FDA-Public Use
  Company Number: US067151

PATIENT
  Age: 42 Year
  Sex: Female

DRUGS (1)
  1. PROCRIT [Suspect]
     Indication: PRE-EXISTING DISEASE
     Dosage: 40000 U, 1 IN 1 WEEKS, SC
     Route: 058

REACTIONS (2)
  - DISEASE PROGRESSION [None]
  - HEPATITIS C [None]
